FAERS Safety Report 24923185 (Version 1)
Quarter: 2025Q1

REPORT INFORMATION
  Report Type: Spontaneous
  Country: US (occurrence: None)
  Receive Date: 20250204
  Receipt Date: 20250204
  Transmission Date: 20250409
  Serious: Yes (Death)
  Sender: FDA-CTU
  Company Number: None

PATIENT
  Age: 76 Year
  Sex: Female

DRUGS (9)
  1. BACLOFEN [Suspect]
     Active Substance: BACLOFEN
  2. CLARITIN [Suspect]
     Active Substance: LORATADINE
  3. COMPAZINE [Suspect]
     Active Substance: PROCHLORPERAZINE MALEATE
  4. ELIQUIS [Suspect]
     Active Substance: APIXABAN
  5. METFORMIN [Suspect]
     Active Substance: METFORMIN HYDROCHLORIDE
  6. NORCO [Suspect]
     Active Substance: ACETAMINOPHEN\HYDROCODONE BITARTRATE
  7. OMEPRAZOLE [Suspect]
     Active Substance: OMEPRAZOLE
  8. PRAVACHOL [Suspect]
     Active Substance: PRAVASTATIN SODIUM
  9. ZOLOFT [Suspect]
     Active Substance: SERTRALINE HYDROCHLORIDE

REACTIONS (1)
  - Death [None]
